FAERS Safety Report 17021614 (Version 3)
Quarter: 2020Q1

REPORT INFORMATION
  Report Type: Report from Study
  Country: JP (occurrence: JP)
  Receive Date: 20191112
  Receipt Date: 20200318
  Transmission Date: 20200409
  Serious: Yes (Death, Hospitalization)
  Sender: FDA-Public Use
  Company Number: JP-EISAI MEDICAL RESEARCH-EC-2019-065068

PATIENT
  Age: 79 Year
  Sex: Male
  Weight: 48 kg

DRUGS (5)
  1. RIFXIMA [Concomitant]
     Active Substance: RIFAXIMIN
  2. LENVIMA [Suspect]
     Active Substance: LENVATINIB
     Indication: HEPATOCELLULAR CARCINOMA
     Route: 048
     Dates: start: 20190121, end: 20190217
  3. LENVIMA [Suspect]
     Active Substance: LENVATINIB
     Route: 048
     Dates: start: 20190423, end: 20190614
  4. LACTULOSE. [Concomitant]
     Active Substance: LACTULOSE
  5. LENVIMA [Suspect]
     Active Substance: LENVATINIB
     Route: 048
     Dates: start: 20190226, end: 20190321

REACTIONS (3)
  - Pyrexia [Recovered/Resolved]
  - Malignant neoplasm progression [Fatal]
  - Hepatic encephalopathy [Recovering/Resolving]

NARRATIVE: CASE EVENT DATE: 20190218
